FAERS Safety Report 23055325 (Version 1)
Quarter: 2023Q4

REPORT INFORMATION
  Report Type: Report from Study
  Country: MX (occurrence: MX)
  Receive Date: 20231011
  Receipt Date: 20231011
  Transmission Date: 20240109
  Serious: Yes (Hospitalization)
  Sender: FDA-Public Use
  Company Number: MX-AstraZeneca-2023A118768

PATIENT
  Age: 45 Day
  Sex: Female
  Weight: 6.5 kg

DRUGS (7)
  1. SYNAGIS [Suspect]
     Active Substance: PALIVIZUMAB
     Indication: Respiratory syncytial virus infection
     Dosage: 0.3ML MONTHLY
     Route: 030
     Dates: start: 20230519, end: 20230519
  2. SYNAGIS [Suspect]
     Active Substance: PALIVIZUMAB
     Indication: Premature baby
     Dosage: 0.6ML MONTHLY
     Route: 030
     Dates: start: 20230623, end: 20230623
  3. SYNAGIS [Suspect]
     Active Substance: PALIVIZUMAB
     Dosage: 0.7 ML MONTHLY
     Route: 030
     Dates: start: 20230721, end: 20230721
  4. SYNAGIS [Suspect]
     Active Substance: PALIVIZUMAB
     Dosage: 9 ML MONTHLY
     Route: 030
     Dates: start: 20230825, end: 20230825
  5. SYNAGIS [Suspect]
     Active Substance: PALIVIZUMAB
     Dosage: 1 ML MONTHLY
     Route: 030
     Dates: start: 20230922, end: 20230922
  6. HYDROCHLOROTHIAZIDE [Concomitant]
     Active Substance: HYDROCHLOROTHIAZIDE
     Indication: Micturition disorder
  7. SPIRONOLACTONE [Concomitant]
     Active Substance: SPIRONOLACTONE
     Indication: Blood pressure abnormal

REACTIONS (4)
  - Influenza [Recovering/Resolving]
  - Crying [Recovered/Resolved]
  - Pyrexia [Recovered/Resolved]
  - Cough [Recovering/Resolving]

NARRATIVE: CASE EVENT DATE: 20230519
